FAERS Safety Report 6117037-7 (Version None)
Quarter: 2009Q1

REPORT INFORMATION
  Report Type: 
  Country: None (occurrence: None)
  Receive Date: 20090314
  Receipt Date: 20090123
  Transmission Date: 20090719
  Serious: Yes (Hospitalization, Other)
  Sender: FDA-Public Use
  Company Number: US-ABBOTT-09P-163-0495996-00

PATIENT
  Sex: Female
  Weight: 104.42 kg

DRUGS (5)
  1. HUMIRA [Suspect]
     Indication: CROHN'S DISEASE
     Route: 058
     Dates: start: 20080101
  2. PENTASA [Concomitant]
     Indication: CROHN'S DISEASE
     Route: 048
  3. ENTECORT [Concomitant]
     Indication: CROHN'S DISEASE
  4. VITAMIN B-12 [Concomitant]
     Indication: CROHN'S DISEASE
  5. PREVACID [Concomitant]
     Indication: ULCER HAEMORRHAGE

REACTIONS (7)
  - CROHN'S DISEASE [None]
  - DEHYDRATION [None]
  - DYSPHAGIA [None]
  - INJECTION SITE PAIN [None]
  - MALAISE [None]
  - PYREXIA [None]
  - VOMITING [None]
